FAERS Safety Report 16027152 (Version 1)
Quarter: 2019Q1

REPORT INFORMATION
  Report Type: Report from Study
  Country: None (occurrence: US)
  Receive Date: 20190303
  Receipt Date: 20190303
  Transmission Date: 20190418
  Serious: Yes (Other)
  Sender: FDA-Public Use
  Company Number: US-ABBVIE-18K-163-2256080-00

PATIENT
  Sex: Female

DRUGS (1)
  1. HUMIRA [Suspect]
     Active Substance: ADALIMUMAB
     Indication: HIDRADENITIS
     Route: 058

REACTIONS (7)
  - Feeling jittery [Recovered/Resolved]
  - Influenza [Recovering/Resolving]
  - Asthenia [Not Recovered/Not Resolved]
  - Immunodeficiency [Recovering/Resolving]
  - Hidradenitis [Recovering/Resolving]
  - Injection site pain [Not Recovered/Not Resolved]
  - Energy increased [Recovered/Resolved]

NARRATIVE: CASE EVENT DATE: 2018
